FAERS Safety Report 24575560 (Version 1)
Quarter: 2024Q4

REPORT INFORMATION
  Report Type: Spontaneous
  Country: US (occurrence: US)
  Receive Date: 20241104
  Receipt Date: 20241104
  Transmission Date: 20250115
  Serious: Yes (Hospitalization, Other)
  Sender: MARKSANS PHARMA LIMITED
  Company Number: US-MARKSANS PHARMA LIMITED-MPL202400079

PATIENT
  Sex: Male

DRUGS (5)
  1. FLUOXETINE [Interacting]
     Active Substance: FLUOXETINE HYDROCHLORIDE
     Indication: Product used for unknown indication
     Dosage: UNK
     Route: 064
  2. QUETIAPINE [Interacting]
     Active Substance: QUETIAPINE
     Indication: Product used for unknown indication
     Dosage: UNK
     Route: 064
  3. CLONAZEPAM [Interacting]
     Active Substance: CLONAZEPAM
     Indication: Product used for unknown indication
     Dosage: UNK
     Route: 064
  4. HYDROMORPHONE [Suspect]
     Active Substance: HYDROMORPHONE
     Indication: Product used for unknown indication
     Dosage: UNK
     Route: 064
  5. OXYCODONE [Suspect]
     Active Substance: OXYCODONE
     Indication: Product used for unknown indication
     Dosage: UNK
     Route: 064

REACTIONS (5)
  - Decerebrate posture [Unknown]
  - Premature baby [Unknown]
  - Hypertonia [Unknown]
  - Foetal exposure during pregnancy [Unknown]
  - Drug interaction [Unknown]
